FAERS Safety Report 7362509-0 (Version None)
Quarter: 2011Q1

REPORT INFORMATION
  Report Type: 
  Country: None (occurrence: None)
  Receive Date: 20110318
  Receipt Date: 20110310
  Transmission Date: 20110831
  Serious: Yes (Hospitalization)
  Sender: FDA-Public Use
  Company Number: US-GENENTECH-313222

PATIENT
  Age: 59 Year
  Sex: Male

DRUGS (1)
  1. RITUXAN [Suspect]
     Indication: RHEUMATOID ARTHRITIS
     Dosage: UNK
     Route: 065
     Dates: start: 20080501

REACTIONS (4)
  - METABOLIC ENCEPHALOPATHY [None]
  - ANTIPHOSPHOLIPID SYNDROME [None]
  - CEREBRAL VENOUS THROMBOSIS [None]
  - RENAL FAILURE ACUTE [None]
